FAERS Safety Report 13782385 (Version 2)
Quarter: 2017Q3

REPORT INFORMATION
  Report Type: Report from Study
  Country: CA (occurrence: CA)
  Receive Date: 20170724
  Receipt Date: 20170727
  Transmission Date: 20171127
  Serious: Yes (Hospitalization)
  Sender: FDA-Public Use
  Company Number: CA-JNJFOC-20170700407

PATIENT
  Age: 52 Year
  Sex: Female
  Weight: 57.7 kg

DRUGS (1)
  1. USTEKUNUMAB [Suspect]
     Active Substance: USTEKINUMAB
     Indication: PSORIASIS
     Route: 058
     Dates: start: 201005

REACTIONS (2)
  - Enterocutaneous fistula [Recovered/Resolved]
  - Bone lesion [Recovered/Resolved]

NARRATIVE: CASE EVENT DATE: 20170125
